FAERS Safety Report 5380455-9 (Version None)
Quarter: 2007Q3

REPORT INFORMATION
  Report Type: 
  Country: None (occurrence: None)
  Receive Date: 20070706
  Receipt Date: 20070628
  Transmission Date: 20080115
  Serious: No
  Sender: FDA-Public Use
  Company Number: A0653574A

PATIENT
  Age: 49 Year
  Sex: Female
  Weight: 62.7 kg

DRUGS (6)
  1. TYKERB [Suspect]
     Indication: DRUG USE FOR UNKNOWN INDICATION
     Route: 065
     Dates: end: 20070503
  2. ZOMETA [Concomitant]
     Route: 042
  3. TAXOTERE [Concomitant]
     Route: 042
  4. HERCEPTIN [Concomitant]
     Route: 042
  5. XELODA [Concomitant]
     Route: 048
     Dates: end: 20070503
  6. COUMADIN [Concomitant]
     Route: 048

REACTIONS (1)
  - DIARRHOEA [None]
